FAERS Safety Report 6526403 (Version 4)
Quarter: 2018Q4

REPORT INFORMATION
  Report Type: Spontaneous
  Country: IT (occurrence: IT)
  Receive Date: 20080114
  Receipt Date: 20181205
  Transmission Date: 20190205
  Serious: Yes (Hospitalization)
  Sender: FDA-Public Use
  Company Number: IT-AVENTIS-200810115EU

PATIENT
  Age: 40 Year
  Sex: Male

DRUGS (10)
  1. LASIX [Suspect]
     Active Substance: FUROSEMIDE
     Indication: NEPHROTIC SYNDROME
     Dosage: 3 DF, PRN
     Route: 048
     Dates: start: 20070507, end: 20070609
  2. PANTORC [Concomitant]
     Active Substance: PANTOPRAZOLE SODIUM
     Dosage: UNK UNK,QD
     Route: 065
  3. METHADONE HYDROCHLORIDE. [Concomitant]
     Active Substance: METHADONE HYDROCHLORIDE
     Dosage: UNK
  4. LASIX [Suspect]
     Active Substance: FUROSEMIDE
     Dosage: UNK UNK,QD
     Route: 048
     Dates: start: 20070928, end: 20071005
  5. LASIX [Suspect]
     Active Substance: FUROSEMIDE
     Dosage: UNK UNK,QD
     Route: 048
     Dates: start: 20071011
  6. LASIX [Suspect]
     Active Substance: FUROSEMIDE
     Dosage: UNK UNK,QD
     Route: 048
  7. ALDACTONE [Concomitant]
     Active Substance: SPIRONOLACTONE
     Dosage: 2 DF,QD
     Route: 048
  8. LASIX [Suspect]
     Active Substance: FUROSEMIDE
     Dosage: UNK UNK,QD
     Route: 048
  9. DELTACORTENE [Concomitant]
     Active Substance: PREDNISONE
     Dosage: UNK
  10. CANRENONE [Concomitant]
     Active Substance: CANRENONE
     Dosage: UNK, UNK
     Route: 065
     Dates: start: 20070705, end: 20070927

REACTIONS (1)
  - Rhabdomyolysis [Not Recovered/Not Resolved]

NARRATIVE: CASE EVENT DATE: 20070609
